FAERS Safety Report 9398899 (Version 1)
Quarter: 2013Q3

REPORT INFORMATION
  Report Type: Spontaneous
  Country: JP (occurrence: JP)
  Receive Date: 20130712
  Receipt Date: 20130712
  Transmission Date: 20140515
  Serious: Yes (Hospitalization)
  Sender: FDA-Public Use
  Company Number: JP-B.I. PHARMACEUTICALS,INC./RIDGEFIELD-2013-BI-20280NB

PATIENT
  Age: 84 Year
  Sex: Female
  Weight: 49.3 kg

DRUGS (5)
  1. PRAZAXA [Suspect]
     Indication: ATRIAL FIBRILLATION
     Dosage: 150 MG
     Route: 048
     Dates: end: 20130508
  2. TAMBOCOR [Concomitant]
     Dosage: 100 MG
     Route: 048
  3. MAGNESIUM OXIDE [Concomitant]
     Dosage: 1 G
     Route: 048
  4. TAKEPRON [Concomitant]
     Dosage: 15 MG
     Route: 048
  5. RIZE [Concomitant]
     Route: 048

REACTIONS (1)
  - Interstitial lung disease [Recovered/Resolved]
